FAERS Safety Report 26199794 (Version 1)
Quarter: 2025Q4

REPORT INFORMATION
  Report Type: Spontaneous
  Country: None (occurrence: EU)
  Receive Date: 20251225
  Receipt Date: 20251225
  Transmission Date: 20260117
  Serious: Yes (Hospitalization, Disabling, Other)
  Sender: ORGANON
  Company Number: EU-ORGANON-O2512IRL002216

PATIENT
  Sex: Female

DRUGS (1)
  1. NUVARING [Suspect]
     Active Substance: ETHINYL ESTRADIOL\ETONOGESTREL
     Dosage: 1 RING

REACTIONS (7)
  - Deep vein thrombosis [Not Recovered/Not Resolved]
  - Embolism arterial [Not Recovered/Not Resolved]
  - Post thrombotic syndrome [Not Recovered/Not Resolved]
  - Emotional distress [Not Recovered/Not Resolved]
  - Nightmare [Not Recovered/Not Resolved]
  - Flashback [Not Recovered/Not Resolved]
  - Anxiety [Not Recovered/Not Resolved]

NARRATIVE: CASE EVENT DATE: 20210101
